FAERS Safety Report 12549960 (Version 1)
Quarter: 2016Q3

REPORT INFORMATION
  Report Type: Spontaneous
  Country: JP (occurrence: JP)
  Receive Date: 20160712
  Receipt Date: 20160712
  Transmission Date: 20161109
  Serious: Yes (Death)
  Sender: FDA-Public Use
  Company Number: JP-MALLINCKRODT-T201602916

PATIENT
  Age: 63 Year
  Sex: Male

DRUGS (13)
  1. METHADONE [Suspect]
     Active Substance: METHADONE HYDROCHLORIDE
     Indication: CANCER PAIN
     Dosage: 10 MG, (30 MG DAIY DOSE)
     Route: 048
     Dates: start: 20150824, end: 20150828
  2. AZANIN [Concomitant]
     Active Substance: AZATHIOPRINE
     Dosage: 50 MG
     Route: 048
     Dates: end: 20150828
  3. MAGMITT [Concomitant]
     Active Substance: MAGNESIUM OXIDE
     Dosage: 1980MG
     Route: 048
     Dates: start: 20150729, end: 20150828
  4. REBAMIPIDE [Concomitant]
     Active Substance: REBAMIPIDE
     Dosage: 300MG
     Route: 048
     Dates: end: 20150828
  5. LYRICA [Concomitant]
     Active Substance: PREGABALIN
     Indication: ANALGESIC THERAPY
     Dosage: 150 MG
     Route: 048
     Dates: start: 20150812, end: 20150828
  6. NOVAMIN [Concomitant]
     Active Substance: PROCHLORPERAZINE MALEATE
     Dosage: 15MG
     Route: 048
     Dates: start: 20150729, end: 20150828
  7. BAYASPIRIN [Concomitant]
     Active Substance: ASPIRIN
     Dosage: 100MG
     Route: 048
     Dates: end: 20150828
  8. NICORANDIL [Concomitant]
     Active Substance: NICORANDIL
     Dosage: 15MG
     Route: 048
     Dates: end: 20150828
  9. COLONEL [Concomitant]
     Active Substance: CALCIUM POLYCARBOPHIL
     Dosage: 3000MG
     Route: 048
     Dates: end: 20150828
  10. ASACOL [Concomitant]
     Active Substance: MESALAMINE
     Dosage: 3600 MG
     Route: 048
     Dates: end: 20150828
  11. TRAMCET [Concomitant]
     Active Substance: ACETAMINOPHEN\TRAMADOL
     Indication: ANALGESIC THERAPY
     Dosage: 4 DF
     Route: 048
     Dates: start: 20150807, end: 20150828
  12. LOXONIN [Concomitant]
     Active Substance: LOXOPROFEN SODIUM
     Indication: ANALGESIC THERAPY
     Dosage: 180MG
     Route: 048
     Dates: start: 20150729, end: 20150828
  13. OPSO [Concomitant]
     Active Substance: MORPHINE HYDROCHLORIDE
     Indication: ANALGESIC THERAPY
     Dosage: 10 MG AS NEEDED
     Route: 048
     Dates: start: 20150823

REACTIONS (1)
  - Pancreatic carcinoma [Fatal]

NARRATIVE: CASE EVENT DATE: 20150901
